FAERS Safety Report 9525001 (Version 2)
Quarter: 2014Q2

REPORT INFORMATION
  Report Type: Spontaneous
  Country: US (occurrence: None)
  Receive Date: 20130912
  Receipt Date: 20140407
  Transmission Date: 20141212
  Serious: Yes (Other)
  Sender: FDA-Public Use
  Company Number: 2013-US-000058

PATIENT
  Age: 44 Year
  Sex: Male

DRUGS (2)
  1. XYREM [Suspect]
     Indication: NARCOLEPSY
     Dates: start: 20041021, end: 2004
  2. XYREM [Suspect]
     Indication: CATAPLEXY
     Dates: start: 20041021, end: 2004

REACTIONS (4)
  - Epilepsy [None]
  - Tinnitus [None]
  - Insomnia [None]
  - Pain [None]
